FAERS Safety Report 7769023-9 (Version None)
Quarter: 2011Q3

REPORT INFORMATION
  Report Type: 
  Country: None (occurrence: None)
  Receive Date: 20110922
  Receipt Date: 20110309
  Transmission Date: 20111222
  Serious: No
  Sender: FDA-Public Use
  Company Number: US-ASTRAZENECA-2011SE13200

PATIENT
  Age: 62 Year
  Sex: Female

DRUGS (5)
  1. SEROQUEL [Suspect]
     Route: 048
  2. SEROQUEL [Suspect]
     Route: 048
  3. NIFEDAPINE [Concomitant]
     Indication: BLOOD PRESSURE
  4. ASPIRIN [Concomitant]
  5. SEROQUEL [Suspect]
     Route: 048

REACTIONS (2)
  - FEELING DRUNK [None]
  - SOMNOLENCE [None]
